FAERS Safety Report 23491149 (Version 1)
Quarter: 2024Q1

REPORT INFORMATION
  Report Type: Spontaneous
  Country: DE (occurrence: DE)
  Receive Date: 20240207
  Receipt Date: 20240207
  Transmission Date: 20240409
  Serious: Yes (Hospitalization, Other)
  Sender: FDA-Public Use
  Company Number: None

PATIENT

DRUGS (1)
  1. FLUTICASONE PROPIONATE\SALMETEROL XINAFOATE [Suspect]
     Active Substance: FLUTICASONE PROPIONATE\SALMETEROL XINAFOATE
     Indication: Childhood asthma
     Dosage: 2 DF, QD, START: SEPTEMBER 13TH 1 STROKE IN THE EVENING
     Route: 055
     Dates: start: 20230913, end: 20230919

REACTIONS (6)
  - Pruritus [Recovered/Resolved]
  - Apnoea [Recovered/Resolved]
  - Peak expiratory flow rate decreased [Recovered/Resolved]
  - Rash [Recovered/Resolved]
  - Oxygen saturation decreased [Recovered/Resolved]
  - Dyspnoea [Recovered/Resolved]

NARRATIVE: CASE EVENT DATE: 20230901
